FAERS Safety Report 14309914 (Version 2)
Quarter: 2017Q4

REPORT INFORMATION
  Report Type: Spontaneous
  Country: JP (occurrence: JP)
  Receive Date: 20171220
  Receipt Date: 20171227
  Transmission Date: 20180321
  Serious: Yes (Other)
  Sender: FDA-Public Use
  Company Number: JP-PFIZER INC-2017536917

PATIENT

DRUGS (1)
  1. JZOLOFT 100MG [Suspect]
     Active Substance: SERTRALINE HYDROCHLORIDE
     Dosage: 100 MG, UNK
     Route: 048

REACTIONS (4)
  - Agitation [Unknown]
  - Dysphagia [Unknown]
  - Delirium [Unknown]
  - Neoplasm malignant [Unknown]
